FAERS Safety Report 20795439 (Version 2)
Quarter: 2022Q2

REPORT INFORMATION
  Report Type: Spontaneous
  Country: US (occurrence: US)
  Receive Date: 20220506
  Receipt Date: 20220609
  Transmission Date: 20220720
  Serious: No
  Sender: FDA-Public Use
  Company Number: US-PFIZER INC-202200568372

PATIENT
  Age: 11 Year
  Sex: Female

DRUGS (1)
  1. GENOTROPIN [Suspect]
     Active Substance: SOMATROPIN
     Dosage: 1.3 MG

REACTIONS (3)
  - Wrong technique in device usage process [Recovered/Resolved]
  - Drug dose omission by device [Unknown]
  - Device information output issue [Recovered/Resolved]

NARRATIVE: CASE EVENT DATE: 20220411
